FAERS Safety Report 5670462-0 (Version None)
Quarter: 2008Q1

REPORT INFORMATION
  Report Type: 
  Country: None (occurrence: None)
  Receive Date: 20080318
  Receipt Date: 20080305
  Transmission Date: 20080703
  Serious: Yes (Other)
  Sender: FDA-Public Use
  Company Number: US-ELI_LILLY_AND_COMPANY-US200803001180

PATIENT
  Sex: Male

DRUGS (3)
  1. ALIMTA [Suspect]
     Indication: MESOTHELIOMA
     Dosage: 500 MG/M2, UNK
     Dates: start: 20070101, end: 20070101
  2. FOLIC ACID [Concomitant]
  3. VITAMIN B-12 [Concomitant]

REACTIONS (1)
  - SEPSIS [None]
